FAERS Safety Report 10430311 (Version 1)
Quarter: 2014Q3

REPORT INFORMATION
  Report Type: Spontaneous
  Country: None (occurrence: None)
  Receive Date: 20140902
  Receipt Date: 20140902
  Transmission Date: 20150326
  Serious: Yes (Life-Threatening)
  Sender: FDA-Public Use
  Company Number: NSR_01617_2014

PATIENT
  Age: 50 Year
  Sex: Female

DRUGS (3)
  1. LEVOTHYROXINE [Concomitant]
     Active Substance: LEVOTHYROXINE
  2. PROPRANOLOL [Suspect]
     Active Substance: PROPRANOLOL\PROPRANOLOL HYDROCHLORIDE
     Indication: ANGINA PECTORIS
  3. CALCIUM [Concomitant]
     Active Substance: CALCIUM

REACTIONS (6)
  - Hyperkalaemia [None]
  - Chest pain [None]
  - Electrocardiogram abnormal [None]
  - Asthenia [None]
  - Hypoaesthesia [None]
  - Hypophagia [None]
